FAERS Safety Report 20455277 (Version 1)
Quarter: 2022Q1

REPORT INFORMATION
  Report Type: Other
  Country: GB (occurrence: GB)
  Receive Date: 20220210
  Receipt Date: 20220210
  Transmission Date: 20220423
  Serious: Yes (Other)
  Sender: FDA-Public Use
  Company Number: None

PATIENT
  Age: 15 Year
  Sex: Female

DRUGS (3)
  1. SERTRALINE [Suspect]
     Active Substance: SERTRALINE HYDROCHLORIDE
     Indication: Generalised anxiety disorder
     Dosage: 125 MILLIGRAM, QD (EVERY MORNING)
     Route: 048
     Dates: start: 20210331, end: 20211110
  2. CITALOPRAM [Suspect]
     Active Substance: CITALOPRAM HYDROBROMIDE
     Indication: Generalised anxiety disorder
     Dosage: 20 MILLIGRAM, QD (EVERY MORNING)
     Route: 048
     Dates: start: 20211108
  3. CITALOPRAM [Suspect]
     Active Substance: CITALOPRAM HYDROBROMIDE
     Dosage: UNK (REDUCED DOSE)
     Route: 048
     Dates: end: 20220201

REACTIONS (3)
  - Bruxism [Not Recovered/Not Resolved]
  - Trismus [Unknown]
  - Pain in jaw [Unknown]

NARRATIVE: CASE EVENT DATE: 20210401
